FAERS Safety Report 4986047-5 (Version None)
Quarter: 2006Q2

REPORT INFORMATION
  Report Type: 
  Country: None (occurrence: None)
  Receive Date: 20060428
  Receipt Date: 20060424
  Transmission Date: 20061013
  Serious: Yes (Life-Threatening)
  Sender: FDA-Public Use
  Company Number: 2006AP01934

PATIENT
  Age: 80 Year
  Sex: Female
  Weight: 29 kg

DRUGS (3)
  1. DIPRIVAN [Suspect]
     Indication: INDUCTION OF ANAESTHESIA
     Route: 042
     Dates: start: 20060420, end: 20060420
  2. DIPRIVAN [Suspect]
     Indication: MAINTENANCE OF ANAESTHESIA
     Route: 042
     Dates: start: 20060420, end: 20060420
  3. CARBOCAIN [Concomitant]
     Route: 065
     Dates: start: 20060420, end: 20060420

REACTIONS (3)
  - ACCIDENTAL OVERDOSE [None]
  - ARRHYTHMIA SUPRAVENTRICULAR [None]
  - DRUG ADMINISTRATION ERROR [None]
